FAERS Safety Report 4992046-X (Version None)
Quarter: 2006Q2

REPORT INFORMATION
  Report Type: 
  Country: None (occurrence: None)
  Receive Date: 20060504
  Receipt Date: 20060424
  Transmission Date: 20061013
  Serious: Yes (Other)
  Sender: FDA-Public Use
  Company Number: JP-JNJFOC-20060103517

PATIENT
  Sex: Female

DRUGS (8)
  1. RISPERDAL [Suspect]
     Route: 048
  2. RISPERDAL [Suspect]
     Indication: SCHIZOPHRENIA
     Route: 048
  3. TRIHEXYPHENIDYL HYDROCHLORIDE [Concomitant]
     Route: 048
  4. TRIHEXYPHENIDYL HYDROCHLORIDE [Concomitant]
     Route: 048
  5. TRIHEXYPHENIDYL HYDROCHLORIDE [Concomitant]
     Route: 048
  6. BROTIZOLAM [Concomitant]
     Route: 048
  7. FERROUS CITRATE [Concomitant]
     Route: 048
  8. SENNOSIDE [Concomitant]
     Indication: CONSTIPATION
     Route: 048

REACTIONS (3)
  - ANAEMIA [None]
  - CONSTIPATION [None]
  - RESTLESSNESS [None]
